FAERS Safety Report 10795092 (Version 1)
Quarter: 2015Q1

REPORT INFORMATION
  Report Type: Spontaneous
  Country: US (occurrence: US)
  Receive Date: 20150214
  Receipt Date: 20150214
  Transmission Date: 20150721
  Serious: No
  Sender: FDA-Public Use
  Company Number: US-GLAXOSMITHKLINE-A1071366A

PATIENT

DRUGS (2)
  1. B12 SOLUTION FOR INJECTION [Concomitant]
  2. NICODERM CQ [Suspect]
     Active Substance: NICOTINE
     Indication: EX-TOBACCO USER
     Route: 062
     Dates: start: 20140331, end: 20140408

REACTIONS (10)
  - Application site papules [Recovered/Resolved]
  - Product quality issue [Unknown]
  - Application site pruritus [Recovered/Resolved]
  - Application site dryness [Recovered/Resolved]
  - Rash [Recovered/Resolved]
  - Rash macular [Not Recovered/Not Resolved]
  - Pruritus [Recovered/Resolved]
  - Application site reaction [Recovered/Resolved]
  - Rash [Unknown]
  - Back pain [Recovered/Resolved]
